FAERS Safety Report 5819963-2 (Version None)
Quarter: 2008Q3

REPORT INFORMATION
  Report Type: 
  Country: None (occurrence: None)
  Receive Date: 20080721
  Receipt Date: 20080708
  Transmission Date: 20090109
  Serious: Yes (Other)
  Sender: FDA-Public Use
  Company Number: US-GDP-08404209

PATIENT
  Age: 27 Year
  Sex: Female

DRUGS (2)
  1. ORACEA [Suspect]
     Indication: ROSACEA
     Dosage: ORAL, 4 MG DAILY
     Route: 048
     Dates: start: 20070101, end: 20080601
  2. PROTONIX [Concomitant]

REACTIONS (4)
  - CLOSTRIDIAL INFECTION [None]
  - CULTURE STOOL POSITIVE [None]
  - DISEASE RECURRENCE [None]
  - PSEUDOMEMBRANOUS COLITIS [None]
